FAERS Safety Report 9714381 (Version 1)
Quarter: 2013Q4

REPORT INFORMATION
  Report Type: Report from Study
  Country: DE (occurrence: DE)
  Receive Date: 20131126
  Receipt Date: 20131126
  Transmission Date: 20140711
  Serious: Yes (Hospitalization, Other)
  Sender: FDA-Public Use
  Company Number: DE-MERCK-1311DEU009082

PATIENT
  Sex: Female
  Weight: 63.7 kg

DRUGS (8)
  1. SIMVASTATIN [Suspect]
     Indication: GENERAL SYMPTOM
     Dosage: UNK
     Route: 048
     Dates: end: 201310
  2. EXEMESTANE [Suspect]
     Indication: BREAST CANCER METASTATIC
     Dosage: 25 MG, QD
     Route: 048
     Dates: start: 20130728
  3. GLYBURIDE [Suspect]
     Indication: DIABETES MELLITUS
     Dosage: UNK
     Dates: start: 201310
  4. AFINITOR [Suspect]
     Indication: BREAST CANCER METASTATIC
     Dosage: 10 MG, QD
     Route: 048
     Dates: start: 20130728, end: 201310
  5. L-THYROXIN [Concomitant]
     Dosage: UNK
  6. BELOC ZOK MITE [Concomitant]
  7. OXYCODONE [Concomitant]
     Dosage: UNK
  8. LASIX (FUROSEMIDE) [Concomitant]
     Dosage: UNK

REACTIONS (10)
  - C-reactive protein increased [Unknown]
  - Myositis [Recovering/Resolving]
  - Rhabdomyolysis [Recovering/Resolving]
  - Muscular weakness [Unknown]
  - Blood creatine phosphokinase increased [Recovering/Resolving]
  - Diabetes mellitus [Unknown]
  - Blood glucose increased [Unknown]
  - Atrial fibrillation [Unknown]
  - Oedema peripheral [Unknown]
  - Epistaxis [Unknown]
